FAERS Safety Report 21185387 (Version 4)
Quarter: 2025Q1

REPORT INFORMATION
  Report Type: Spontaneous
  Country: JP (occurrence: JP)
  Receive Date: 20220808
  Receipt Date: 20250227
  Transmission Date: 20250409
  Serious: Yes (Hospitalization, Other)
  Sender: GLAXOSMITHKLINE
  Company Number: JP-GLAXOSMITHKLINE-JP2020JPN262259

PATIENT

DRUGS (26)
  1. MEPOLIZUMAB [Suspect]
     Active Substance: MEPOLIZUMAB
     Indication: Eosinophilic granulomatosis with polyangiitis
     Dosage: 300 MG, Q4W
     Dates: start: 20181217
  2. PREDONINE [Concomitant]
     Active Substance: PREDNISOLONE
     Indication: Eosinophilic granulomatosis with polyangiitis
     Dosage: 5 MG, 1D
     Dates: end: 20190408
  3. PREDONINE [Concomitant]
     Active Substance: PREDNISOLONE
     Indication: Neurological symptom
     Dosage: 25 MG, 1D
     Dates: start: 20190409, end: 20190506
  4. PREDONINE [Concomitant]
     Active Substance: PREDNISOLONE
     Indication: Hypoaesthesia
     Dosage: 22.5 MG, 1D
     Dates: start: 20190507, end: 20190603
  5. PREDONINE [Concomitant]
     Active Substance: PREDNISOLONE
     Dosage: 20 MG, 1D
     Dates: start: 20190604, end: 20190701
  6. PREDONINE [Concomitant]
     Active Substance: PREDNISOLONE
     Dosage: 17.5 MG, 1D
     Dates: start: 20190702, end: 20190729
  7. PREDONINE [Concomitant]
     Active Substance: PREDNISOLONE
     Dosage: 15 MG, 1D
     Dates: start: 20190730, end: 20190826
  8. PREDONINE [Concomitant]
     Active Substance: PREDNISOLONE
     Dosage: 12.5 MG, 1D
     Dates: start: 20190827, end: 20190923
  9. PREDONINE [Concomitant]
     Active Substance: PREDNISOLONE
     Dosage: 10 MG, 1D
     Dates: start: 20190924, end: 20191028
  10. PREDONINE [Concomitant]
     Active Substance: PREDNISOLONE
     Dosage: 5 MG, 1D
     Dates: start: 20191029, end: 20200309
  11. PREDONINE [Concomitant]
     Active Substance: PREDNISOLONE
     Dosage: 10 MG, 1D
     Dates: start: 20200310, end: 20200930
  12. PREDONINE [Concomitant]
     Active Substance: PREDNISOLONE
     Dosage: 5 MG, 1D
     Dates: start: 20201001
  13. PREDONINE [Concomitant]
     Active Substance: PREDNISOLONE
     Dosage: 13 MG, 1D
  14. PREDNISOLONE [Concomitant]
     Active Substance: PREDNISOLONE
     Indication: Eosinophilic granulomatosis with polyangiitis
     Dosage: 2 MG, 1D
     Dates: end: 20190408
  15. PREDNISOLONE [Concomitant]
     Active Substance: PREDNISOLONE
     Dosage: 4 MG, 1D
     Dates: start: 20191029, end: 20191125
  16. PREDNISOLONE [Concomitant]
     Active Substance: PREDNISOLONE
     Dosage: 3 MG, 1D
     Dates: start: 20191126, end: 20200126
  17. PREDNISOLONE [Concomitant]
     Active Substance: PREDNISOLONE
     Dosage: 2 MG, 1D
     Dates: start: 20200127, end: 20200203
  18. PREDNISOLONE [Concomitant]
     Active Substance: PREDNISOLONE
     Dosage: 3 MG, 1D
     Dates: start: 20200204, end: 20200309
  19. PREDNISOLONE [Concomitant]
     Active Substance: PREDNISOLONE
     Dosage: 4 MG, 1D
     Dates: start: 20201001
  20. PREDNISOLONE [Concomitant]
     Active Substance: PREDNISOLONE
  21. PREDNISOLONE [Concomitant]
     Active Substance: PREDNISOLONE
  22. PREDNISOLONE [Concomitant]
     Active Substance: PREDNISOLONE
  23. PREDNISOLONE [Concomitant]
     Active Substance: PREDNISOLONE
  24. PREDNISOLONE [Concomitant]
     Active Substance: PREDNISOLONE
  25. PREDNISOLONE [Concomitant]
     Active Substance: PREDNISOLONE
  26. AZATHIOPRINE [Concomitant]
     Active Substance: AZATHIOPRINE

REACTIONS (7)
  - Malaise [Recovering/Resolving]
  - Infection [Recovered/Resolved]
  - C-reactive protein increased [Recovered/Resolved]
  - Eosinophilic granulomatosis with polyangiitis [Recovered/Resolved]
  - Condition aggravated [Recovered/Resolved]
  - Movement disorder [Recovered/Resolved]
  - Glycosuria [Unknown]

NARRATIVE: CASE EVENT DATE: 20220101
